FAERS Safety Report 13484586 (Version 1)
Quarter: 2017Q2

REPORT INFORMATION
  Report Type: Spontaneous
  Country: US (occurrence: US)
  Receive Date: 20170426
  Receipt Date: 20170426
  Transmission Date: 20170830
  Serious: No
  Sender: FDA-Public Use
  Company Number: US-PFIZER INC-2017175340

PATIENT
  Age: 80 Year
  Sex: Male
  Weight: 65.77 kg

DRUGS (10)
  1. LISINOPRIL. [Concomitant]
     Active Substance: LISINOPRIL
     Indication: HYPERTENSION
     Dosage: 20 MG, 1X/DAY
  2. PROCARDIA XL [Suspect]
     Active Substance: NIFEDIPINE
     Dosage: UNK
  3. CRESTOR [Concomitant]
     Active Substance: ROSUVASTATIN CALCIUM
     Indication: BLOOD CHOLESTEROL
     Dosage: 20 MG, 1X/DAY
  4. PEPCID [Concomitant]
     Active Substance: FAMOTIDINE
     Dosage: UNK, 2X/DAY
  5. PROCARDIA XL [Suspect]
     Active Substance: NIFEDIPINE
     Indication: HYPERTENSION
     Dosage: 90 MG, 1X/DAY
     Dates: start: 20170418, end: 20170418
  6. BYSTOLIC [Concomitant]
     Active Substance: NEBIVOLOL HYDROCHLORIDE
     Indication: HYPERTENSION
     Dosage: 5 MG, 1X/DAY
  7. ASPIRIN. [Concomitant]
     Active Substance: ASPIRIN
     Dosage: 81 MG, 1X/DAY
  8. PLAVIX [Concomitant]
     Active Substance: CLOPIDOGREL BISULFATE
     Indication: MYOCARDIAL INFARCTION
     Dosage: 75 MG, 1X/DAY
  9. LEVOTHYROXINE. [Concomitant]
     Active Substance: LEVOTHYROXINE
     Indication: THYROID DISORDER
     Dosage: 62.5 UG, 1X/DAY
  10. PEPCID [Concomitant]
     Active Substance: FAMOTIDINE
     Indication: PROPHYLAXIS
     Dosage: 20 MG, AS NEEDED (ONCE A DAY)

REACTIONS (1)
  - Pruritus [Recovering/Resolving]

NARRATIVE: CASE EVENT DATE: 201704
